FAERS Safety Report 18772478 (Version 2)
Quarter: 2021Q2

REPORT INFORMATION
  Report Type: Spontaneous
  Country: GB (occurrence: GB)
  Receive Date: 20210122
  Receipt Date: 20210629
  Transmission Date: 20210717
  Serious: Yes (Other)
  Sender: FDA-Public Use
  Company Number: GB-SA-2021SA018577

PATIENT
  Age: 22 Year
  Sex: Female

DRUGS (1)
  1. MYOZYME [Suspect]
     Active Substance: ALGLUCOSIDASE ALFA
     Dosage: 1200 MG, QOW
     Route: 041

REACTIONS (4)
  - Withdrawal bleed [Unknown]
  - Abortion spontaneous [Unknown]
  - Pregnancy [Unknown]
  - Heavy menstrual bleeding [Recovered/Resolved]
